FAERS Safety Report 17772489 (Version 1)
Quarter: 2020Q2

REPORT INFORMATION
  Report Type: Spontaneous
  Country: ES (occurrence: ES)
  Receive Date: 20200512
  Receipt Date: 20200512
  Transmission Date: 20200714
  Serious: Yes (Hospitalization)
  Sender: FDA-Public Use
  Company Number: ES-JNJFOC-20200511586

PATIENT
  Age: 80 Year
  Sex: Female
  Weight: 84 kg

DRUGS (5)
  1. PREGABALIN. [Interacting]
     Active Substance: PREGABALIN
     Indication: LUMBAR SPINAL STENOSIS
     Dosage: 75 MILLIGRAM, 1/DAY
     Route: 048
     Dates: start: 20200417
  2. FENTANILO MATRIX SANDOZ [Interacting]
     Active Substance: FENTANYL
     Indication: LUMBAR SPINAL STENOSIS
     Dosage: 25 MICROGRAM, 1 /72 HRS
     Route: 062
     Dates: start: 20200416, end: 20200421
  3. PAROXETINA [PAROXETINE] [Concomitant]
     Active Substance: PAROXETINE
     Indication: PRODUCT USED FOR UNKNOWN INDICATION
     Dosage: 20 MILLIGRAM, 1/DAY
     Route: 048
     Dates: start: 20191029
  4. QUETIAPINA [QUETIAPINE] [Interacting]
     Active Substance: QUETIAPINE
     Indication: PRODUCT USED FOR UNKNOWN INDICATION
     Dosage: 25 MILLIGRAM, 1/DAY
     Route: 048
     Dates: start: 20200417, end: 20200421
  5. TRAMADOL/APAP [Suspect]
     Active Substance: ACETAMINOPHEN\TRAMADOL
     Indication: PRODUCT USED FOR UNKNOWN INDICATION
     Dosage: UNK
     Route: 048
     Dates: start: 20200417, end: 20200420

REACTIONS (3)
  - Fall [Recovered/Resolved]
  - Drug interaction [Recovered/Resolved]
  - Femur fracture [Recovering/Resolving]

NARRATIVE: CASE EVENT DATE: 20200417
